FAERS Safety Report 5390413-6 (Version None)
Quarter: 2007Q3

REPORT INFORMATION
  Report Type: 
  Country: None (occurrence: None)
  Receive Date: 20070718
  Receipt Date: 20070426
  Transmission Date: 20080115
  Serious: No
  Sender: FDA-Public Use
  Company Number: US-KINGPHARMUSA00001-K200700525

PATIENT

DRUGS (5)
  1. LEVOXYL [Suspect]
     Indication: HYPOTHYROIDISM
     Dosage: UNK, UNK
     Dates: start: 19970101
  2. LEVOXYL [Suspect]
     Indication: AUTOIMMUNE THYROIDITIS
     Dosage: 88 MCG, QOD
     Route: 048
     Dates: start: 20050101
  3. LEVOXYL [Suspect]
     Dosage: 100 MCG, QOD
     Route: 048
     Dates: start: 20050101
  4. ^CITRALINE^ [Concomitant]
     Indication: ANTIDEPRESSANT THERAPY
     Dosage: 200 MG, QD
     Route: 048
     Dates: start: 20010101
  5. T3SR [Concomitant]
     Indication: HYPOTHYROIDISM
     Dosage: 3 MCG, QD
     Route: 048
     Dates: start: 20070101

REACTIONS (3)
  - ABDOMINAL DISTENSION [None]
  - DIARRHOEA [None]
  - GASTROINTESTINAL DISORDER [None]
